FAERS Safety Report 8113778-0 (Version None)
Quarter: 2012Q1

REPORT INFORMATION
  Report Type: 
  Country: None (occurrence: None)
  Receive Date: 20120203
  Receipt Date: 20120126
  Transmission Date: 20120608
  Serious: No
  Sender: FDA-Public Use
  Company Number: US-PFIZER INC-2012022567

PATIENT
  Sex: Female

DRUGS (1)
  1. CELEBREX [Suspect]
     Indication: ARTHROPATHY
     Dosage: UNK

REACTIONS (5)
  - PARAESTHESIA [None]
  - URTICARIA [None]
  - HYPERSENSITIVITY [None]
  - HYPOAESTHESIA [None]
  - PRURITUS [None]
